FAERS Safety Report 10383794 (Version 1)
Quarter: 2014Q1

REPORT INFORMATION
  Report Type: Spontaneous
  Country: US (occurrence: None)
  Receive Date: 20140306
  Receipt Date: 20140306
  Transmission Date: 20141002
  Serious: Yes (Hospitalization)
  Sender: FDA-Public Use
  Company Number: 163-21880-13113237

PATIENT
  Age: 57 Year
  Sex: Male

DRUGS (1)
  1. REVLIMID (LENALIDOMIDE) (20 MILLIGRAM, CAPSULES) [Suspect]
     Indication: NEOPLASM MALIGNANT
     Dosage: 20 MG, 21 IN 21 D, PO
     Route: 048
     Dates: start: 20131104, end: 20131111

REACTIONS (4)
  - Pyrexia [None]
  - Headache [None]
  - Asthenia [None]
  - Rash [None]
